FAERS Safety Report 25145591 (Version 4)
Quarter: 2025Q4

REPORT INFORMATION
  Report Type: Report from Study
  Country: CA (occurrence: CA)
  Receive Date: 20250401
  Receipt Date: 20251016
  Transmission Date: 20260119
  Serious: Yes (Hospitalization, Other)
  Sender: ROCHE
  Company Number: CA-ROCHE-10000173514

PATIENT
  Sex: Male

DRUGS (1)
  1. OCREVUS [Suspect]
     Active Substance: OCRELIZUMAB
     Indication: Relapsing-remitting multiple sclerosis
     Dosage: 300 MG AT DAY 0 AND 14, THEN 600 MG EVERY 6 MONTHS
     Route: 042
     Dates: start: 20230217

REACTIONS (5)
  - Neutropenia [Not Recovered/Not Resolved]
  - Febrile neutropenia [Recovered/Resolved]
  - Aphthous ulcer [Recovered/Resolved]
  - Fatigue [Unknown]
  - Neutrophil count decreased [Not Recovered/Not Resolved]
